FAERS Safety Report 9880968 (Version 1)
Quarter: 2014Q1

REPORT INFORMATION
  Report Type: Spontaneous
  Country: US (occurrence: None)
  Receive Date: 20140206
  Receipt Date: 20140206
  Transmission Date: 20141002
  Serious: Yes (Other)
  Sender: FDA-Public Use
  Company Number: None

PATIENT
  Age: 71 Year
  Sex: Male
  Weight: 86.18 kg

DRUGS (3)
  1. EQUATE GENTLE LUBRICANT EYE DROP 30 ML ALTAIRE PHARMACEUTICALS/ WAL-MART [Suspect]
     Indication: DRY EYE
     Dosage: 1 DROP QID OPHTHALMIC
     Route: 047
     Dates: start: 20130830, end: 20130903
  2. EQUATE GENTLE LUBRICANT EYE DROP 30 ML ALTAIRE PHARMACEUTICALS/ WAL-MART [Suspect]
     Indication: CORNEAL TRANSPLANT
     Dosage: 1 DROP QID OPHTHALMIC
     Route: 047
     Dates: start: 20130830, end: 20130903
  3. FLAREX (FLUOROMETHALONE ACETATE) [Concomitant]

REACTIONS (4)
  - Corneal graft rejection [None]
  - Corneal oedema [None]
  - Product odour abnormal [None]
  - Visual acuity reduced [None]
